FAERS Safety Report 22682786 (Version 3)
Quarter: 2023Q4

REPORT INFORMATION
  Report Type: Spontaneous
  Country: US (occurrence: US)
  Receive Date: 20230707
  Receipt Date: 20231130
  Transmission Date: 20240109
  Serious: Yes (Hospitalization, Other)
  Sender: FDA-Public Use
  Company Number: US-TORRENT-00012735

PATIENT
  Age: 79 Year
  Sex: Male

DRUGS (6)
  1. CARBAMAZEPINE [Suspect]
     Active Substance: CARBAMAZEPINE
     Indication: Dementia Alzheimer^s type
     Dosage: UNKNOWN
     Route: 065
  2. CITALOPRAM [Suspect]
     Active Substance: CITALOPRAM HYDROBROMIDE
     Indication: Dementia Alzheimer^s type
     Dosage: UNKNOWN
     Route: 065
  3. OLANZAPINE [Suspect]
     Active Substance: OLANZAPINE
     Indication: Dementia Alzheimer^s type
     Dosage: DOSES WERE ESCALATED
     Route: 065
  4. RISPERIDONE [Suspect]
     Active Substance: RISPERIDONE
     Indication: Dementia Alzheimer^s type
     Dosage: UNKNOWN
     Route: 065
  5. TRAZODONE [Suspect]
     Active Substance: TRAZODONE HYDROCHLORIDE
     Indication: Dementia Alzheimer^s type
     Dosage: DOSES WERE ESCALATED
     Route: 065
  6. QUETIAPINE [Suspect]
     Active Substance: QUETIAPINE
     Indication: Dementia Alzheimer^s type
     Dosage: UNKNOWN
     Route: 065

REACTIONS (3)
  - Serotonin syndrome [Recovering/Resolving]
  - Condition aggravated [Recovered/Resolved]
  - Abnormal behaviour [Recovered/Resolved]
